FAERS Safety Report 9798967 (Version 1)
Quarter: 2013Q4

REPORT INFORMATION
  Report Type: Spontaneous
  Country: US (occurrence: None)
  Receive Date: 20131231
  Receipt Date: 20131231
  Transmission Date: 20140711
  Serious: Yes (Hospitalization)
  Sender: FDA-Public Use
  Company Number: UCM201312-000099

PATIENT
  Age: 67 Year
  Sex: Female

DRUGS (4)
  1. AMLODIPINE (AMLODIPINE) (AMLODIPINE) [Suspect]
  2. CARVEDILOL [Suspect]
  3. ASPIRIN (ASPIRIN) (ASPIRIN) [Suspect]
  4. LEVOTHYROXINE [Suspect]

REACTIONS (3)
  - Hepatitis [None]
  - Cholelithiasis [None]
  - Drug-induced liver injury [None]
